FAERS Safety Report 7734114-5 (Version None)
Quarter: 2011Q3

REPORT INFORMATION
  Report Type: 
  Country: None (occurrence: None)
  Receive Date: 20110901
  Receipt Date: 20110817
  Transmission Date: 20111222
  Serious: Yes (Death, Hospitalization, Other)
  Sender: FDA-Public Use
  Company Number: 2011MA009192

PATIENT

DRUGS (1)
  1. METFORMIN HYDROCHLORIDE [Suspect]
     Indication: PRODUCT USED FOR UNKNOWN INDICATION

REACTIONS (3)
  - STEVENS-JOHNSON SYNDROME [None]
  - OVERLAP SYNDROME [None]
  - TOXIC EPIDERMAL NECROLYSIS [None]
